FAERS Safety Report 14845419 (Version 2)
Quarter: 2018Q2

REPORT INFORMATION
  Report Type: Spontaneous
  Country: FR (occurrence: FR)
  Receive Date: 20180504
  Receipt Date: 20180510
  Transmission Date: 20180711
  Serious: Yes (Hospitalization)
  Sender: FDA-Public Use
  Company Number: FR-TEVA-2018-FR-889445

PATIENT
  Age: 70 Year
  Sex: Male
  Weight: 94.4 kg

DRUGS (7)
  1. PARIET 10 MG, COMPRIM? GASTRO-R?SISTANT [Concomitant]
     Dosage: 1 TO 2 CP / DAY
     Route: 048
  2. VANCOMYCIN [Suspect]
     Active Substance: VANCOMYCIN
     Indication: DEVICE RELATED INFECTION
     Dosage: 25 GRAM DAILY;
     Route: 042
     Dates: start: 20171213, end: 20180109
  3. EXFORGE [Concomitant]
     Active Substance: AMLODIPINE BESYLATE\VALSARTAN
     Dosage: 1 DOSAGE FORMS DAILY;
     Route: 048
  4. NEBIVOLOL. [Concomitant]
     Active Substance: NEBIVOLOL
     Dosage: 5 MILLIGRAM DAILY;
     Route: 048
  5. PRAZOSINE BASE [Concomitant]
     Dosage: 5 MILLIGRAM DAILY;
     Route: 048
  6. ROCEPHINE 2 G, POUDRE POUR SOLUTION POUR PERFUSION [Suspect]
     Active Substance: CEFTRIAXONE SODIUM
     Indication: DEVICE RELATED INFECTION
     Dosage: 2 GRAM DAILY;
     Route: 042
     Dates: start: 20171213, end: 20180109
  7. KARDEGIC [Concomitant]
     Active Substance: ASPIRIN DL-LYSINE
     Dosage: 1 DOSAGE FORMS DAILY;
     Route: 048

REACTIONS (1)
  - Febrile neutropenia [Recovered/Resolved]

NARRATIVE: CASE EVENT DATE: 20180109
